FAERS Safety Report 5325854-6 (Version None)
Quarter: 2007Q2

REPORT INFORMATION
  Report Type: 
  Country: None (occurrence: None)
  Receive Date: 20070504
  Receipt Date: 20070418
  Transmission Date: 20071010
  Serious: Yes (Hospitalization)
  Sender: FDA-Public Use
  Company Number: AEDEU200700089

PATIENT
  Age: 68 Year
  Sex: Male

DRUGS (20)
  1. GAMUNEX [Suspect]
     Indication: SELECTIVE IGG SUBCLASS DEFICIENCY
     Dosage: 100 ML; TOTAL; IV
     Route: 042
     Dates: start: 20070410, end: 20070410
  2. BRONCHORETARD [Concomitant]
  3. DECORTIN [Concomitant]
  4. OXIS /00958002/ [Concomitant]
  5. FLUTICASONE PROPIONATE [Concomitant]
  6. SPIRIVA [Concomitant]
  7. DELIX PLUS [Concomitant]
  8. DILZEM /00489702/ [Concomitant]
  9. SIFROL [Concomitant]
  10. ALLOPURINOL [Concomitant]
  11. ZINKOROTAT [Concomitant]
  12. ASPIRIN [Concomitant]
  13. PANTOZOL /02692601/ [Concomitant]
  14. ALDACTONE /00252502/ [Concomitant]
  15. IDEOS /00944201/ [Concomitant]
  16. KALINOR /00031402/ [Concomitant]
  17. KALINOR /01478101/ [Concomitant]
  18. BEROTEC [Concomitant]
  19. TRIAMTERENE AND HYDROCHLOROTHIAZIDE [Concomitant]
  20. LOSNESIUM POWDER [Concomitant]

REACTIONS (6)
  - ANAPHYLACTIC REACTION [None]
  - DRUG HYPERSENSITIVITY [None]
  - DYSPNOEA [None]
  - INFUSION RELATED REACTION [None]
  - SHOCK [None]
  - TACHYCARDIA [None]
